FAERS Safety Report 17955663 (Version 2)
Quarter: 2022Q1

REPORT INFORMATION
  Report Type: Spontaneous
  Country: US (occurrence: US)
  Receive Date: 20200629
  Receipt Date: 20220125
  Transmission Date: 20220423
  Serious: Yes (Other)
  Sender: FDA-Public Use
  Company Number: US-GLAXOSMITHKLINE-US2020112423

PATIENT
  Sex: Female

DRUGS (7)
  1. RANITIDINE HYDROCHLORIDE [Suspect]
     Active Substance: RANITIDINE HYDROCHLORIDE
     Indication: Product used for unknown indication
     Dosage: UNK
     Route: 065
  2. RANITIDINE HYDROCHLORIDE [Suspect]
     Active Substance: RANITIDINE HYDROCHLORIDE
     Indication: Product used for unknown indication
     Dosage: UNK
     Route: 065
  3. RANITIDINE [Suspect]
     Active Substance: RANITIDINE
     Indication: Urticaria
     Dosage: 150 MG, OCCASIONAL
     Route: 065
     Dates: start: 201705, end: 201802
  4. RANITIDINE [Suspect]
     Active Substance: RANITIDINE
     Indication: Urticaria
     Dosage: 150 MG, OCCASIONAL
     Route: 065
     Dates: start: 201705, end: 201802
  5. RANITIDINE [Suspect]
     Active Substance: RANITIDINE
     Indication: Urticaria
     Dosage: 150 MG, OCCASIONAL
     Route: 065
     Dates: start: 201705, end: 201802
  6. RANITIDINE [Suspect]
     Active Substance: RANITIDINE
     Indication: Urticaria
     Dosage: 150 MG, OCCASIONAL
     Route: 065
     Dates: start: 201705, end: 201802
  7. RANITIDINE HYDROCHLORIDE [Suspect]
     Active Substance: RANITIDINE HYDROCHLORIDE
     Indication: Urticaria
     Dosage: 50 MG/ML, OCCASIONAL
     Route: 065
     Dates: start: 201705, end: 201802

REACTIONS (1)
  - Colorectal cancer [Unknown]
